FAERS Safety Report 9619635 (Version 2)
Quarter: 2013Q4

REPORT INFORMATION
  Report Type: Spontaneous
  Country: JP (occurrence: JP)
  Receive Date: 20131014
  Receipt Date: 20131104
  Transmission Date: 20140711
  Serious: Yes (Hospitalization)
  Sender: FDA-Public Use
  Company Number: PHHY2013JP114663

PATIENT
  Age: 18 Month
  Sex: Male

DRUGS (4)
  1. CARBAMAZEPINE [Suspect]
     Indication: EPILEPSY
     Dosage: 100 MG, UNK
     Route: 048
     Dates: start: 20090116, end: 20090206
  2. CARBAMAZEPINE [Suspect]
     Indication: HEMIPLEGIA
  3. VALPROIC ACID [Concomitant]
     Indication: EPILEPSY
     Route: 048
  4. VALPROIC ACID [Concomitant]
     Indication: HEMIPLEGIA

REACTIONS (8)
  - Histiocytosis haematophagic [Recovered/Resolved]
  - Pyrexia [Unknown]
  - Lymphadenopathy [Unknown]
  - Leukopenia [Unknown]
  - Neutropenia [Unknown]
  - Anaemia [Unknown]
  - Human herpesvirus 6 infection [Unknown]
  - Lymphocyte stimulation test positive [Unknown]
